FAERS Safety Report 19396917 (Version 1)
Quarter: 2021Q2

REPORT INFORMATION
  Report Type: Spontaneous
  Country: FR (occurrence: FR)
  Receive Date: 20210609
  Receipt Date: 20210609
  Transmission Date: 20210717
  Serious: Yes (Death)
  Sender: FDA-Public Use
  Company Number: NVSC2021FR129056

PATIENT
  Age: 60 Year
  Sex: Male
  Weight: 101 kg

DRUGS (4)
  1. NEBIVOLOL. [Concomitant]
     Active Substance: NEBIVOLOL
     Indication: PRODUCT USED FOR UNKNOWN INDICATION
     Dosage: UNK
     Route: 065
  2. TIAPRIDAL [Suspect]
     Active Substance: TIAPRIDE HYDROCHLORIDE
     Indication: PARANOIA
     Dosage: 200 MG, QD (100 MG MATIN ET SOIR)
     Route: 048
     Dates: start: 202104
  3. RISPERIDONE. [Suspect]
     Active Substance: RISPERIDONE
     Indication: PARANOIA
     Dosage: 6 MG, QD (2MG MATIN ET 4MG SOIR)
     Route: 048
     Dates: start: 202104, end: 20210503
  4. VALIUM [Suspect]
     Active Substance: DIAZEPAM
     Indication: AGITATION
     Dosage: 30 DRP, QD
     Route: 048
     Dates: start: 20210404

REACTIONS (1)
  - Sudden death [Fatal]

NARRATIVE: CASE EVENT DATE: 20210505
